FAERS Safety Report 7768089-X (Version None)
Quarter: 2011Q3

REPORT INFORMATION
  Report Type: 
  Country: None (occurrence: None)
  Receive Date: 20110922
  Receipt Date: 20110919
  Transmission Date: 20111222
  Serious: Yes (Hospitalization, Congenital Anomaly, Other)
  Sender: FDA-Public Use
  Company Number: US-PFIZER INC-2011159771

PATIENT
  Sex: Male
  Weight: 3 kg

DRUGS (5)
  1. PRENATAL VITAMINS [Concomitant]
     Dosage: UNK
     Route: 064
  2. COLACE [Concomitant]
     Dosage: UNK
     Route: 064
  3. ZOLOFT [Suspect]
     Dosage: UNK
     Route: 064
     Dates: start: 20091010
  4. EFFEXOR [Suspect]
     Dosage: UNK
     Route: 064
  5. IRON [Concomitant]
     Indication: ANAEMIA
     Dosage: UNK
     Route: 064

REACTIONS (3)
  - DYSPNOEA [None]
  - CLEFT LIP [None]
  - MATERNAL EXPOSURE DURING PREGNANCY [None]
